FAERS Safety Report 7418447-8 (Version None)
Quarter: 2011Q2

REPORT INFORMATION
  Report Type: 
  Country: None (occurrence: None)
  Receive Date: 20110407
  Receipt Date: 20110324
  Transmission Date: 20111010
  Serious: Yes (Other)
  Sender: FDA-Public Use
  Company Number: 029977

PATIENT
  Sex: Male

DRUGS (3)
  1. KEPPRA [Suspect]
     Dosage: (1000 MG THERAPEUTIC DOSE ORAL)
     Route: 048
  2. ALCOHOL /00002102/ VODKA) [Suspect]
  3. DIAZEPAM [Suspect]
     Dosage: (1 TABL THERAPEUTIC DOSE ORAL)
     Route: 048

REACTIONS (2)
  - HYPOKINESIA [None]
  - DRUG ABUSE [None]
